FAERS Safety Report 12799555 (Version 2)
Quarter: 2017Q2

REPORT INFORMATION
  Report Type: Report from Study
  Country: FR (occurrence: FR)
  Receive Date: 20160930
  Receipt Date: 20170530
  Transmission Date: 20170830
  Serious: Yes (Death, Life-Threatening, Hospitalization)
  Sender: FDA-Public Use
  Company Number: PHHO2016FR006141

PATIENT
  Age: 49 Year
  Sex: Female
  Weight: 50.7 kg

DRUGS (23)
  1. VALACICLOVIR [Concomitant]
     Active Substance: VALACYCLOVIR HYDROCHLORIDE
     Indication: PRODUCT USED FOR UNKNOWN INDICATION
     Dosage: 1 DF, BID (1 TABLET, MORNING, EVENING, FOR 20 DAYS)
     Route: 048
     Dates: start: 20160412
  2. AMIKACINE//AMIKACIN [Concomitant]
     Active Substance: AMIKACIN
     Indication: PRODUCT USED FOR UNKNOWN INDICATION
     Route: 065
  3. ONCOVIN [Concomitant]
     Active Substance: VINCRISTINE SULFATE
     Indication: ACUTE LYMPHOCYTIC LEUKAEMIA
     Dosage: 2 MG, QD
     Route: 042
     Dates: start: 20160411, end: 20160411
  4. TRIFLUCAN [Concomitant]
     Active Substance: FLUCONAZOLE
     Indication: PRODUCT USED FOR UNKNOWN INDICATION
     Dosage: 400 MG, AT 8:00 AM, FOR 35 DAYS
     Route: 042
     Dates: start: 20160405
  5. ALLOPURINOL. [Concomitant]
     Active Substance: ALLOPURINOL
     Indication: HYPERURICAEMIA
     Dosage: 900 MG (300 MG MORNING FOR 35 DAYS AND  AT 2:00 AM AND 300 MG AT NOON FOR 3 DAYS)
     Route: 048
     Dates: start: 20160405
  6. ALPRAZOLAM. [Concomitant]
     Active Substance: ALPRAZOLAM
     Indication: PRODUCT USED FOR UNKNOWN INDICATION
     Route: 065
  7. NOVORAPID [Concomitant]
     Active Substance: INSULIN ASPART
     Indication: PRODUCT USED FOR UNKNOWN INDICATION
     Route: 065
  8. HYDROXYCARBAMIDE [Concomitant]
     Active Substance: HYDROXYUREA
     Indication: PRODUCT USED FOR UNKNOWN INDICATION
     Dosage: 500 MG, TID
     Route: 048
     Dates: start: 20160402, end: 20160405
  9. VITAMIN K [Concomitant]
     Active Substance: PHYTONADIONE
     Indication: PRODUCT USED FOR UNKNOWN INDICATION
     Dosage: 1 AMPULE EVERY MONDAYS, WEDNESDAY, FRIDAY AT 8:00 AM, FOR 35 DAYS
     Route: 065
     Dates: start: 20160406
  10. CAFFEINE CITRATE. [Concomitant]
     Active Substance: CAFFEINE CITRATE
     Indication: PRODUCT USED FOR UNKNOWN INDICATION
     Dosage: 300 MG, 300 MG AT 8:00 AM, FOR 1 WEEK
     Route: 042
     Dates: start: 20160408, end: 20160417
  11. ACUPAN [Concomitant]
     Active Substance: NEFOPAM HYDROCHLORIDE
     Indication: PAIN
     Dosage: 20 MG, PRN IF VISUAL ANALOGUE SCALE } 3, MAXIMAL DOSAGE: 80 MG / 24H
     Route: 042
     Dates: start: 20160402
  12. LACTULOSE. [Concomitant]
     Active Substance: LACTULOSE
     Indication: CONSTIPATION
     Dosage: 1 DF, PRN (WITH A MAXIMUM DOSAGE OF 3 SACHET DOSE / 24H (INTERVAL BETWEEN 2 INTAKES: 4 H))
     Route: 048
     Dates: start: 20160407, end: 20160412
  13. PIPERACILLIN AND TAZOBACTAM [Concomitant]
     Active Substance: PIPERACILLIN SODIUM\TAZOBACTAM SODIUM
     Indication: PRODUCT USED FOR UNKNOWN INDICATION
     Route: 065
  14. AMN107 [Suspect]
     Active Substance: NILOTINIB
     Indication: ACUTE LYMPHOCYTIC LEUKAEMIA
     Dosage: 400 MG
     Route: 048
     Dates: start: 20160411, end: 20160413
  15. METHYLPREDNISOLONE. [Concomitant]
     Active Substance: METHYLPREDNISOLONE
     Indication: PRODUCT USED FOR UNKNOWN INDICATION
     Dosage: 60 MG, AT 8:00 AM, FOR 15 DAYS
     Route: 042
     Dates: start: 20160405
  16. AMPHOTERICIN B. [Concomitant]
     Active Substance: AMPHOTERICIN B
     Indication: PRODUCT USED FOR UNKNOWN INDICATION
     Dosage: 1 TSP, Q4H (12:00 AM, 04:00 AM, 8:00 AM, 12:00 PM, 04:00 PM, 08:00 PM FOR 35 DAYS)
     Route: 048
     Dates: start: 20160405
  17. METOCLOPRAMIDE. [Concomitant]
     Active Substance: METOCLOPRAMIDE
     Indication: PRODUCT USED FOR UNKNOWN INDICATION
     Route: 065
  18. ZOVIRAX [Concomitant]
     Active Substance: ACYCLOVIR
     Indication: PRODUCT USED FOR UNKNOWN INDICATION
     Dosage: 250 MG, TID (250 MG X 3/24H AT 12:00 AM, 8:00 AM, 04:00 PM, FOR 1 WEEK)
     Route: 048
     Dates: start: 20160410
  19. DUPHALAC [Concomitant]
     Active Substance: LACTULOSE
     Indication: CONSTIPATION
     Dosage: UNK
     Route: 065
     Dates: start: 20160407
  20. FLUCONAZOLE. [Concomitant]
     Active Substance: FLUCONAZOLE
     Indication: ANTIFUNGAL PROPHYLAXIS
     Dosage: 400 MG
     Route: 042
     Dates: start: 20160406
  21. NEODEX//DEXAMETHASONE [Concomitant]
     Active Substance: DEXAMETHASONE
     Indication: ACUTE LYMPHOCYTIC LEUKAEMIA
     Dosage: 40 MG
     Route: 048
     Dates: start: 20160411, end: 20160412
  22. PARACETAMOL [Concomitant]
     Active Substance: ACETAMINOPHEN
     Indication: PRODUCT USED FOR UNKNOWN INDICATION
     Dosage: 1000 MG, 2 CAPSULES AS NEEDED FOR 7 DAYS
     Route: 048
     Dates: start: 20160402, end: 20160409
  23. SODIUM BICARBONATE. [Concomitant]
     Active Substance: SODIUM BICARBONATE
     Indication: PRODUCT USED FOR UNKNOWN INDICATION
     Dosage: 1 DF, Q4H, AT 12:00 AM, 04:00 AM, 8:00 AM, 12:00 PM, 04:00 PM, 08:00 PM FOR 35 DAYS
     Route: 002
     Dates: start: 20160405

REACTIONS (2)
  - Respiratory failure [Fatal]
  - Sepsis [Fatal]

NARRATIVE: CASE EVENT DATE: 20160414
